FAERS Safety Report 9372809 (Version 3)
Quarter: 2013Q3

REPORT INFORMATION
  Report Type: Spontaneous
  Country: GB (occurrence: None)
  Receive Date: 20130605
  Receipt Date: 20130904
  Transmission Date: 20140515
  Serious: Yes (Other)
  Sender: FDA-Public Use
  Company Number: 2013036288

PATIENT
  Age: 46 Year
  Sex: Female

DRUGS (1)
  1. PRIVIGEN [Suspect]
     Indication: CHRONIC INFLAMMATORY DEMYELINATING POLYRADICULONEUROPATHY
     Dosage: 55 G, FREQUENCY 5/52  INTRAVENOUS (NOT OTHERWISE SEPCIFIED)
     Route: 042
     Dates: start: 20130327

REACTIONS (6)
  - Restless legs syndrome [None]
  - Arthralgia [None]
  - Pain in extremity [None]
  - Back pain [None]
  - Pain in extremity [None]
  - Vomiting [None]
